FAERS Safety Report 5190285-9 (Version None)
Quarter: 2006Q4

REPORT INFORMATION
  Report Type: 
  Country: None (occurrence: None)
  Receive Date: 20061222
  Receipt Date: 20060515
  Transmission Date: 20070319
  Serious: No
  Sender: FDA-Public Use
  Company Number: US-AMGEN-US179635

PATIENT
  Sex: Female

DRUGS (10)
  1. ARANESP [Suspect]
     Indication: ANAEMIA OF MALIGNANT DISEASE
     Route: 065
     Dates: start: 20040201
  2. GLYBURIDE [Concomitant]
     Route: 065
  3. AVANDIA [Concomitant]
     Route: 065
  4. GLUCOPHAGE [Concomitant]
     Route: 065
  5. DIOVAN [Concomitant]
     Route: 065
  6. TRIAMTERENE AND HYDROCHLOROTHIAZIDE [Concomitant]
     Route: 065
  7. METOPROLOL SUCCINATE [Concomitant]
     Route: 065
  8. VYTORIN [Concomitant]
     Route: 065
  9. CARBIDOPA AND LEVODOPA [Concomitant]
     Route: 065
  10. LUMIGAN [Concomitant]
     Route: 047

REACTIONS (1)
  - HAEMOGLOBIN DECREASED [None]
